FAERS Safety Report 8359787-8 (Version None)
Quarter: 2012Q2

REPORT INFORMATION
  Report Type: 
  Country: None (occurrence: None)
  Receive Date: 20120515
  Receipt Date: 20120507
  Transmission Date: 20120825
  Serious: Yes (Hospitalization)
  Sender: FDA-Public Use
  Company Number: PHHY2012FR039811

PATIENT
  Sex: Female

DRUGS (7)
  1. TEGRETOL [Suspect]
     Dosage: 1200 MG, DAILY
     Route: 048
  2. TEGRETOL [Suspect]
     Dosage: UNK UKN, UNK
  3. VALDOXAN [Concomitant]
     Dosage: UNK UKN, UNK
  4. LEXOMIL [Suspect]
     Dosage: 0.25 DF TID + 0.5 DF QD FOR A LONG TIME
     Route: 048
  5. CYMBALTA [Concomitant]
     Dosage: 60 MG,/ PER DAY
     Route: 048
  6. NOCTAMID [Concomitant]
     Dosage: 1 DF, QD
     Route: 048
  7. DEPAKOTE [Concomitant]
     Dosage: 500 MG X 5 QD
     Route: 048

REACTIONS (8)
  - HEADACHE [None]
  - GENERAL PHYSICAL HEALTH DETERIORATION [None]
  - HYPONATRAEMIA [None]
  - FALL [None]
  - HYPERKALAEMIA [None]
  - HYPOCHLORAEMIA [None]
  - MALAISE [None]
  - HYPOPROTEINAEMIA [None]
